FAERS Safety Report 6993842-X (Version None)
Quarter: 2010Q3

REPORT INFORMATION
  Report Type: 
  Country: None (occurrence: None)
  Receive Date: 20100917
  Receipt Date: 20070920
  Transmission Date: 20110219
  Serious: Yes (Hospitalization)
  Sender: FDA-Public Use
  Company Number: US-ASTRAZENECA-2007UW09252

PATIENT
  Age: 22469 Day
  Sex: Female
  Weight: 103.9 kg

DRUGS (14)
  1. SEROQUEL [Suspect]
     Indication: ANXIETY
     Dates: start: 19991201
  2. SEROQUEL [Suspect]
     Indication: PANIC ATTACK
     Dates: start: 19991201
  3. SEROQUEL [Suspect]
     Dosage: 25 MG-300 MG
     Route: 048
     Dates: start: 20000517
  4. SEROQUEL [Suspect]
     Dosage: 25 MG-300 MG
     Route: 048
     Dates: start: 20000517
  5. GLUCOPHAGE [Concomitant]
     Dates: start: 19990824
  6. WELLBUTRIN SR [Concomitant]
     Dosage: 75 MG-150 MG
     Dates: start: 19990526
  7. CELEBREX [Concomitant]
     Dosage: 100 MG-200 MG
     Dates: start: 20000203
  8. LIPITOR [Concomitant]
     Indication: HYPERLIPIDAEMIA
     Dosage: 10 MG-20 MG
     Dates: start: 19990830
  9. DETROL [Concomitant]
     Dates: start: 20001122
  10. XENICAL [Concomitant]
     Dates: start: 20001010
  11. PRILOSEC [Concomitant]
     Indication: ABDOMINAL DISCOMFORT
     Dates: start: 19990302
  12. AMITRIPTYLINE HCL [Concomitant]
     Indication: SLEEP DISORDER
     Dosage: 10 MG-50 MG
     Dates: start: 19980212
  13. ENALAPRIL MALEATE [Concomitant]
     Dates: start: 20000919
  14. ZOCOR [Concomitant]
     Dates: start: 20070724

REACTIONS (2)
  - DIABETES MELLITUS [None]
  - HYPOGLYCAEMIA [None]
